FAERS Safety Report 16230308 (Version 1)
Quarter: 2019Q2

REPORT INFORMATION
  Report Type: Report from Study
  Country: US (occurrence: US)
  Receive Date: 20190423
  Receipt Date: 20190423
  Transmission Date: 20190711
  Serious: Yes (Hospitalization)
  Sender: FDA-Public Use
  Company Number: US-BAUSCH-BL-2019-011886

PATIENT
  Sex: Female

DRUGS (2)
  1. SILIQ [Suspect]
     Active Substance: BRODALUMAB
     Indication: PSORIASIS
     Route: 058
     Dates: start: 201808, end: 2018
  2. SILIQ [Suspect]
     Active Substance: BRODALUMAB
     Route: 058
     Dates: start: 20190403, end: 20190409

REACTIONS (1)
  - Pancreatitis [Unknown]

NARRATIVE: CASE EVENT DATE: 2018
